FAERS Safety Report 5000151-7 (Version None)
Quarter: 2006Q2

REPORT INFORMATION
  Report Type: 
  Country: None (occurrence: None)
  Receive Date: 20060510
  Receipt Date: 20060428
  Transmission Date: 20061013
  Serious: Yes (Life-Threatening, Hospitalization, Disabling)
  Sender: FDA-Public Use
  Company Number: HQWYE042228APR06

PATIENT
  Age: 44 Year
  Sex: Male

DRUGS (5)
  1. RAPAMUNE [Suspect]
     Indication: IMMUNOSUPPRESSANT DRUG THERAPY
     Dosage: 2 MG 1X PER 1 DAY ORAL
     Route: 048
     Dates: start: 20060222, end: 20060424
  2. CELLCEPT [Concomitant]
  3. PREDNISONE TAB [Concomitant]
  4. ADALAT XL (NIFEDIPINE) [Concomitant]
  5. DAPSONE [Concomitant]

REACTIONS (3)
  - EPSTEIN-BARR VIRAEMIA [None]
  - LYMPHOPROLIFERATIVE DISORDER [None]
  - POLYOMAVIRUS-ASSOCIATED NEPHROPATHY [None]
